FAERS Safety Report 24065889 (Version 1)
Quarter: 2024Q3

REPORT INFORMATION
  Report Type: Spontaneous
  Country: US (occurrence: None)
  Receive Date: 20240709
  Receipt Date: 20240709
  Transmission Date: 20241017
  Serious: No
  Sender: Public
  Company Number: None

PATIENT
  Sex: Male

DRUGS (2)
  1. CAPECITABINE [Suspect]
     Active Substance: CAPECITABINE
     Indication: Rectosigmoid cancer
     Dosage: 1500 PO??500MG:TAKE 3 TABLETS BY MOUTH 2 TIMES A DAY FOR 14 DAYS ON THEN 7 DAYS OFF.(TOTAL DOSE OF
     Route: 048
     Dates: start: 202406
  2. CAPECITABINE [Suspect]
     Active Substance: CAPECITABINE
     Indication: Rectosigmoid cancer
     Dosage: 150 BID PO
     Route: 048
     Dates: start: 202406

REACTIONS (3)
  - Fatigue [None]
  - Brain fog [None]
  - Nausea [None]
